APPROVED DRUG PRODUCT: DICLOFENAC POTASSIUM
Active Ingredient: DICLOFENAC POTASSIUM
Strength: 50MG
Dosage Form/Route: TABLET;ORAL
Application: A215585 | Product #001 | TE Code: AB
Applicant: NOVAST LABORATORIES LTD
Approved: Oct 8, 2021 | RLD: No | RS: No | Type: RX